FAERS Safety Report 6973992-4 (Version None)
Quarter: 2010Q3

REPORT INFORMATION
  Report Type: 
  Country: None (occurrence: None)
  Receive Date: 20100909
  Receipt Date: 20100831
  Transmission Date: 20110219
  Serious: Yes (Hospitalization)
  Sender: FDA-Public Use
  Company Number: A0871999B

PATIENT
  Sex: Male
  Weight: 93.9 kg

DRUGS (2)
  1. OFATUMUMAB [Suspect]
     Dosage: 300MG CYCLIC
     Route: 042
     Dates: start: 20100628
  2. INTRAGAM [Concomitant]
     Dosage: 33G MONTHLY
     Route: 042
     Dates: start: 20100826

REACTIONS (5)
  - LOWER RESPIRATORY TRACT INFECTION [None]
  - MUSCULOSKELETAL CHEST PAIN [None]
  - NEUTROPENIA [None]
  - PRODUCTIVE COUGH [None]
  - PYREXIA [None]
